FAERS Safety Report 19983852 (Version 2)
Quarter: 2021Q4

REPORT INFORMATION
  Report Type: Spontaneous
  Country: US (occurrence: US)
  Receive Date: 20211021
  Receipt Date: 20211028
  Transmission Date: 20220303
  Serious: Yes (Other)
  Sender: FDA-Public Use
  Company Number: US-TEVA-2021-US-1966658

PATIENT
  Age: 7 Decade
  Sex: Male

DRUGS (4)
  1. LEUCOVORIN [Suspect]
     Active Substance: LEUCOVORIN
     Indication: Oesophageal adenocarcinoma
     Dosage: FOLFOX REGIMEN
     Route: 065
     Dates: start: 202102
  2. FLUOROURACIL [Suspect]
     Active Substance: FLUOROURACIL
     Indication: Oesophageal adenocarcinoma
     Dosage: FOLFOX REGIMEN, BOLUS DOSE WAS OMITTED AFTER CYCLE 2 AND FURTHER INFUSION DOSE REDUCED TO 80% AFTER
     Route: 050
     Dates: start: 202102
  3. FLUOROURACIL [Suspect]
     Active Substance: FLUOROURACIL
     Dosage: BOLUS DOSE; FOLFOX REGIMEN, THE BOLUS DOSE WAS OMITTED AFTER CYCLE 2 AND FURTHER INFUSION DOSE WAS R
     Route: 050
     Dates: start: 202102
  4. OXALIPLATIN [Suspect]
     Active Substance: OXALIPLATIN
     Indication: Oesophageal adenocarcinoma
     Dosage: FOLFOX REGIMEN
     Route: 065
     Dates: start: 202102

REACTIONS (5)
  - Neutropenia [Unknown]
  - Blindness transient [Recovered/Resolved]
  - Diarrhoea [Unknown]
  - Feeling cold [Unknown]
  - Nausea [Recovered/Resolved]

NARRATIVE: CASE EVENT DATE: 20210101
